FAERS Safety Report 5575148-9 (Version None)
Quarter: 2007Q4

REPORT INFORMATION
  Report Type: 
  Country: None (occurrence: None)
  Receive Date: 20071227
  Receipt Date: 20071217
  Transmission Date: 20080405
  Serious: Yes (Hospitalization)
  Sender: FDA-Public Use
  Company Number: FR-PFIZER INC-2007107098

PATIENT
  Sex: Male

DRUGS (7)
  1. ACUITEL [Suspect]
     Indication: HYPERTENSION
     Dosage: DAILY DOSE:20MG-FREQ:DAILY
     Route: 048
  2. ATENOLOL [Suspect]
     Indication: HYPERTENSION
     Dosage: DAILY DOSE:75MG-FREQ:DAILY
     Route: 048
  3. TRILEPTAL [Suspect]
     Indication: EPILEPSY
     Dosage: DAILY DOSE:600MG-FREQ:DAILY
     Route: 048
  4. SELEGILINE HCL [Suspect]
     Dosage: DAILY DOSE:10MG-FREQ:DAILY
     Route: 048
  5. LASILIX [Suspect]
     Indication: HYPERTENSION
     Dosage: DAILY DOSE:40MG-FREQ:DAILY
     Route: 048
     Dates: start: 20071007, end: 20071001
  6. AUGMENTIN '250' [Concomitant]
     Indication: LUNG DISORDER
     Route: 048
     Dates: start: 20071007, end: 20071001
  7. ASPEGIC 1000 [Concomitant]
     Dosage: DAILY DOSE:100MG-FREQ:DAILY

REACTIONS (2)
  - BRADYCARDIA [None]
  - HYPOTENSION [None]
